FAERS Safety Report 9653175 (Version 2)
Quarter: 2014Q1

REPORT INFORMATION
  Report Type: Spontaneous
  Country: US (occurrence: US)
  Receive Date: 20131029
  Receipt Date: 20140108
  Transmission Date: 20141002
  Serious: Yes (Death, Hospitalization)
  Sender: FDA-Public Use
  Company Number: US-GLAXOSMITHKLINE-A1046491A

PATIENT
  Age: 74 Year
  Sex: Male

DRUGS (4)
  1. ADVAIR [Suspect]
     Indication: CHRONIC OBSTRUCTIVE PULMONARY DISEASE
     Dosage: 1PUFF TWICE PER DAY
     Route: 055
  2. ATIVAN [Concomitant]
  3. MORPHINE [Concomitant]
  4. ROXICODONE [Concomitant]

REACTIONS (7)
  - Small intestine carcinoma metastatic [Fatal]
  - Pulmonary mass [Unknown]
  - Rib fracture [Unknown]
  - Spinal fracture [Unknown]
  - Hepatic enzyme [Unknown]
  - Blood calcium increased [Unknown]
  - White blood cell count increased [Unknown]
